FAERS Safety Report 8385706-4 (Version None)
Quarter: 2012Q2

REPORT INFORMATION
  Report Type: 
  Country: None (occurrence: None)
  Receive Date: 20120525
  Receipt Date: 20120514
  Transmission Date: 20120825
  Serious: Yes (Other)
  Sender: FDA-Public Use
  Company Number: BR-BRISTOL-MYERS SQUIBB COMPANY-16607624

PATIENT
  Age: 63 Year
  Sex: Female

DRUGS (2)
  1. CLONAZEPAM [Concomitant]
     Indication: BLOOD PRESSURE
     Dosage: 1DF=0.5 UNITS NOT SPECIFIED
  2. METFORMIN HYDROCHLORIDE [Suspect]
     Dosage: 850MG TABS 1TAB AFTER LUNCH
     Dates: start: 20120314

REACTIONS (1)
  - URINARY TRACT INFECTION FUNGAL [None]
